FAERS Safety Report 11689049 (Version 1)
Quarter: 2015Q4

REPORT INFORMATION
  Report Type: Spontaneous
  Country: US (occurrence: None)
  Receive Date: 20151030
  Receipt Date: 20151030
  Transmission Date: 20160304
  Serious: Yes (Other)
  Sender: FDA-Public Use
  Company Number: None

PATIENT
  Age: 20 Year
  Sex: Female

DRUGS (1)
  1. AUVI-Q [Suspect]
     Active Substance: EPINEPHRINE
     Indication: ANAPHYLACTIC REACTION
     Dosage: 3 DOSES OF 0.3 MG
     Route: 030
     Dates: start: 20151028, end: 20151028

REACTIONS (4)
  - Product quality issue [None]
  - Incorrect dose administered [None]
  - Heart rate increased [None]
  - No therapeutic response [None]

NARRATIVE: CASE EVENT DATE: 20151028
